FAERS Safety Report 7412833-8 (Version None)
Quarter: 2011Q2

REPORT INFORMATION
  Report Type: 
  Country: None (occurrence: None)
  Receive Date: 20110413
  Receipt Date: 20110405
  Transmission Date: 20111010
  Serious: Yes (Other)
  Sender: FDA-Public Use
  Company Number: B0711752A

PATIENT
  Age: 24 Year
  Sex: Male

DRUGS (2)
  1. PAXIL [Suspect]
     Indication: SOCIAL PHOBIA
     Dosage: 10MG PER DAY
     Route: 048
     Dates: start: 20110328, end: 20110401
  2. SOLANAX [Suspect]
     Indication: SOCIAL PHOBIA
     Dosage: .8MG PER DAY
     Route: 048
     Dates: start: 20110328

REACTIONS (10)
  - INSOMNIA [None]
  - GAZE PALSY [None]
  - NAUSEA [None]
  - DIZZINESS [None]
  - HEADACHE [None]
  - PALLOR [None]
  - LOSS OF CONSCIOUSNESS [None]
  - TREMOR [None]
  - TONIC CONVULSION [None]
  - DECREASED APPETITE [None]
